FAERS Safety Report 20085592 (Version 63)
Quarter: 2023Q4

REPORT INFORMATION
  Report Type: Report from Study
  Country: CH (occurrence: CH)
  Receive Date: 20211118
  Receipt Date: 20231219
  Transmission Date: 20240110
  Serious: Yes (Other)
  Sender: FDA-Public Use
  Company Number: CH-TAKEDA-2021TUS062986

PATIENT
  Age: 7 Year
  Sex: Male
  Weight: 45 kg

DRUGS (22)
  1. IDURSULFASE [Suspect]
     Active Substance: IDURSULFASE
     Indication: Mucopolysaccharidosis II
     Dosage: UNK
     Route: 042
     Dates: start: 2016
  2. IDURSULFASE [Suspect]
     Active Substance: IDURSULFASE
     Dosage: 2 DOSAGE FORM
     Route: 042
  3. IDURSULFASE [Suspect]
     Active Substance: IDURSULFASE
     Dosage: 3 DOSAGE FORM, 1/WEEK
     Route: 042
  4. IDURSULFASE [Suspect]
     Active Substance: IDURSULFASE
     Dosage: 6 MILLIGRAM, 1/WEEK
     Route: 042
  5. IDURSULFASE [Suspect]
     Active Substance: IDURSULFASE
     Dosage: 3 DOSAGE FORM, 1/WEEK
     Route: 042
  6. IDURSULFASE [Suspect]
     Active Substance: IDURSULFASE
     Dosage: 3 DOSAGE FORM, 1/WEEK
     Route: 042
     Dates: end: 20220623
  7. IDURSULFASE [Suspect]
     Active Substance: IDURSULFASE
     Dosage: 3 DOSAGE FORM, 1/WEEK
     Route: 042
     Dates: end: 20220707
  8. IDURSULFASE [Suspect]
     Active Substance: IDURSULFASE
     Dosage: 3 DOSAGE FORM, 1/WEEK
     Route: 042
  9. IDURSULFASE [Suspect]
     Active Substance: IDURSULFASE
     Dosage: 3 DOSAGE FORM, 1/WEEK
     Route: 042
  10. IDURSULFASE [Suspect]
     Active Substance: IDURSULFASE
     Dosage: 3 DOSAGE FORM, 1/WEEK
     Route: 042
  11. IDURSULFASE [Suspect]
     Active Substance: IDURSULFASE
     Dosage: 3 DOSAGE FORM, 1/WEEK
     Route: 042
  12. IDURSULFASE [Suspect]
     Active Substance: IDURSULFASE
     Dosage: 3 DOSAGE FORM, 1/WEEK
     Route: 042
  13. IDURSULFASE [Suspect]
     Active Substance: IDURSULFASE
     Dosage: 3 DOSAGE FORM, 1/WEEK
     Route: 042
  14. IDURSULFASE [Suspect]
     Active Substance: IDURSULFASE
     Dosage: UNK UNK, 1/WEEK
     Route: 042
  15. IDURSULFASE [Suspect]
     Active Substance: IDURSULFASE
     Dosage: UNK, 1/WEEK
     Route: 042
     Dates: start: 2017
  16. IDURSULFASE [Suspect]
     Active Substance: IDURSULFASE
     Dosage: UNK, 1/WEEK
     Route: 042
  17. ENALAPRIL [Suspect]
     Active Substance: ENALAPRIL
     Indication: Aortic valve incompetence
     Dosage: 5 MILLIGRAM, QD
     Route: 048
     Dates: start: 20230204
  18. VALPROATE SODIUM [Suspect]
     Active Substance: VALPROATE SODIUM
     Indication: Aggression
     Dosage: 300 MILLIGRAM, QD
     Route: 048
     Dates: start: 20230504
  19. VALPROATE SODIUM [Suspect]
     Active Substance: VALPROATE SODIUM
     Dosage: 300 MILLIGRAM, BID
     Route: 048
     Dates: start: 20230508, end: 20230622
  20. VALPROATE SODIUM [Suspect]
     Active Substance: VALPROATE SODIUM
     Dosage: UNK, QD
     Route: 065
     Dates: start: 20230622
  21. VALPROATE SODIUM [Suspect]
     Active Substance: VALPROATE SODIUM
     Dosage: UNK
     Route: 065
     Dates: end: 20230622
  22. RISPERIDONE [Concomitant]
     Active Substance: RISPERIDONE
     Dosage: 3 MILLIGRAM, QD
     Route: 065

REACTIONS (46)
  - Aortic valve incompetence [Not Recovered/Not Resolved]
  - Tooth fracture [Not Recovered/Not Resolved]
  - Peripheral coldness [Recovering/Resolving]
  - Gingival bleeding [Recovered/Resolved]
  - Fatigue [Not Recovered/Not Resolved]
  - Scratch [Recovered/Resolved]
  - Injury [Recovered/Resolved]
  - Mastication disorder [Not Recovered/Not Resolved]
  - Memory impairment [Not Recovered/Not Resolved]
  - Drug ineffective [Not Recovered/Not Resolved]
  - Blood pressure systolic increased [Not Recovered/Not Resolved]
  - Weight decreased [Unknown]
  - Heart valve incompetence [Unknown]
  - Ear haemorrhage [Not Recovered/Not Resolved]
  - Nasopharyngitis [Not Recovered/Not Resolved]
  - Dental caries [Not Recovered/Not Resolved]
  - Blood immunoglobulin E increased [Recovered/Resolved]
  - Blood pressure diastolic decreased [Not Recovered/Not Resolved]
  - Heart rate decreased [Not Recovered/Not Resolved]
  - Kyphosis [Recovered/Resolved]
  - COVID-19 [Recovered/Resolved]
  - Blood pressure systolic decreased [Recovered/Resolved]
  - Agitation [Not Recovered/Not Resolved]
  - Body height increased [Not Recovered/Not Resolved]
  - Weight increased [Recovered/Resolved]
  - Somnolence [Not Recovered/Not Resolved]
  - White blood cell count decreased [Recovered/Resolved]
  - Red cell distribution width increased [Recovered/Resolved]
  - Salivary hypersecretion [Not Recovered/Not Resolved]
  - Saliva discolouration [Recovered/Resolved]
  - Aggression [Not Recovered/Not Resolved]
  - Insomnia [Not Recovered/Not Resolved]
  - Sleep disorder [Recovered/Resolved]
  - Restlessness [Not Recovered/Not Resolved]
  - Blood immunoglobulin G abnormal [Not Recovered/Not Resolved]
  - Red blood cell microcytes present [Recovered/Resolved]
  - Red blood cell hypochromic morphology present [Recovered/Resolved]
  - Vomiting [Not Recovered/Not Resolved]
  - Pyrexia [Recovered/Resolved]
  - Diarrhoea [Not Recovered/Not Resolved]
  - Myringitis [Recovered/Resolved]
  - Gastroenteritis viral [Recovered/Resolved]
  - Oxygen saturation decreased [Not Recovered/Not Resolved]
  - Productive cough [Recovered/Resolved]
  - Cough [Recovered/Resolved]
  - Tachycardia [Not Recovered/Not Resolved]

NARRATIVE: CASE EVENT DATE: 20170101
